FAERS Safety Report 7016626-5 (Version None)
Quarter: 2010Q3

REPORT INFORMATION
  Report Type: 
  Country: None (occurrence: None)
  Receive Date: 20100927
  Receipt Date: 20100917
  Transmission Date: 20110219
  Serious: Yes (Other)
  Sender: FDA-Public Use
  Company Number: B0675730A

PATIENT
  Sex: Male

DRUGS (2)
  1. LAMICTAL [Suspect]
     Indication: EPILEPSY
     Route: 048
     Dates: start: 20100301
  2. LAMICTAL [Suspect]
     Dosage: 200MG PER DAY
     Route: 048
     Dates: start: 20100801, end: 20100904

REACTIONS (4)
  - EYE PRURITUS [None]
  - OCULAR HYPERAEMIA [None]
  - PRURITUS GENERALISED [None]
  - RASH [None]
